FAERS Safety Report 8878350 (Version 2)
Quarter: 2013Q2

REPORT INFORMATION
  Report Type: Report from Study
  Country: JP (occurrence: JP)
  Receive Date: 20121030
  Receipt Date: 20130610
  Transmission Date: 20140414
  Serious: Yes (Other)
  Sender: FDA-Public Use
  Company Number: JP-VERTEX PHARMACEUTICAL INC.-AE-2012-009260

PATIENT
  Age: 52 Year
  Sex: Male

DRUGS (12)
  1. VX-950 (TELAPREVIR) [Suspect]
     Indication: CHRONIC HEPATITIS C
     Dosage: 2250 MG, QD
     Route: 048
     Dates: start: 20120417, end: 20120528
  2. VX-950 (TELAPREVIR) [Suspect]
     Dosage: 1500 MG, QD
     Route: 048
     Dates: start: 20120529, end: 20120619
  3. RIBAVIRIN [Suspect]
     Indication: CHRONIC HEPATITIS C
     Dosage: 800 MG, QD
     Route: 048
     Dates: start: 20120417, end: 20120521
  4. RIBAVIRIN [Suspect]
     Dosage: 600 MG, QD
     Route: 048
     Dates: start: 20120522, end: 20120611
  5. RIBAVIRIN [Suspect]
     Dosage: 400 MG, QD
     Route: 048
     Dates: start: 20120612, end: 20120709
  6. RIBAVIRIN [Suspect]
     Dosage: 600 MG, QD
     Route: 048
     Dates: start: 20120710, end: 20120723
  7. RIBAVIRIN [Suspect]
     Dosage: 800 MG, QD
     Route: 048
     Dates: start: 20120724, end: 20121001
  8. PEGINTRON [Suspect]
     Indication: CHRONIC HEPATITIS C
     Dosage: 1.5 ?G/KG, QW
     Route: 058
     Dates: start: 20120417, end: 20120925
  9. GLYCYRON [Concomitant]
     Dosage: 6 DF, QD
     Route: 048
     Dates: end: 20120430
  10. ALESION [Concomitant]
     Dosage: 20 MG, QD
     Route: 048
     Dates: end: 20121001
  11. ADALAT CR [Concomitant]
     Dosage: 40 MG, QD
     Route: 048
  12. URSO [Concomitant]
     Dosage: 600 MG, QD
     Route: 048
     Dates: end: 20120430

REACTIONS (1)
  - Rash [Recovered/Resolved]
